FAERS Safety Report 12985812 (Version 2)
Quarter: 2016Q4

REPORT INFORMATION
  Report Type: Spontaneous
  Country: FR (occurrence: FR)
  Receive Date: 20161130
  Receipt Date: 20161208
  Transmission Date: 20170207
  Serious: Yes (Hospitalization, Other)
  Sender: FDA-Public Use
  Company Number: FR-009507513-1611FRA012127

PATIENT
  Age: 51 Year
  Sex: Female

DRUGS (5)
  1. KEYTRUDA [Suspect]
     Active Substance: PEMBROLIZUMAB
     Indication: METASTATIC MALIGNANT MELANOMA
     Dosage: 90 MG, EVERY 3 WEEKS
     Route: 042
     Dates: start: 20150710
  2. ATARAX [Concomitant]
     Active Substance: HYDROXYZINE\HYDROXYZINE HYDROCHLORIDE
     Dosage: UNK
  3. PANTOPRAZOLE [Concomitant]
     Active Substance: PANTOPRAZOLE SODIUM
  4. LEXOMIL [Concomitant]
     Active Substance: BROMAZEPAM
     Dosage: UNK
  5. PARACETAMOL ACTAVIS [Concomitant]
     Active Substance: ACETAMINOPHEN

REACTIONS (5)
  - Hypothyroidism [Unknown]
  - Acute kidney injury [Unknown]
  - Amenorrhoea [Unknown]
  - Herpes zoster [Recovered/Resolved with Sequelae]
  - Diabetic ketoacidosis [Recovered/Resolved]

NARRATIVE: CASE EVENT DATE: 20150813
